FAERS Safety Report 5521579-2 (Version None)
Quarter: 2007Q4

REPORT INFORMATION
  Report Type: 
  Country: None (occurrence: None)
  Receive Date: 20071120
  Receipt Date: 20071109
  Transmission Date: 20080405
  Serious: Yes (Hospitalization)
  Sender: FDA-Public Use
  Company Number: JP-JNJFOC-20071103895

PATIENT
  Age: 76 Year
  Sex: Male

DRUGS (2)
  1. DUROTEP [Suspect]
     Route: 062
  2. DUROTEP [Suspect]
     Indication: PAIN
     Route: 062

REACTIONS (3)
  - MENTAL DISORDER [None]
  - OVERDOSE [None]
  - PAIN [None]
